FAERS Safety Report 4270026-X (Version None)
Quarter: 2004Q1

REPORT INFORMATION
  Report Type: 
  Country: None (occurrence: None)
  Receive Date: 20040114
  Receipt Date: 20021213
  Transmission Date: 20041129
  Serious: No
  Sender: FDA-Public Use
  Company Number: US-GLAXOSMITHKLINE-A0389202A

PATIENT
  Age: 19 Year
  Sex: Female
  Weight: 47.7 kg

DRUGS (2)
  1. WELLBUTRIN [Suspect]
     Indication: ANXIETY
     Dosage: 100MG PER DAY
     Route: 048
     Dates: start: 20021101
  2. PROZAC [Suspect]
     Indication: ANXIETY
     Route: 048

REACTIONS (1)
  - TREMOR [None]
